FAERS Safety Report 7511951-3 (Version None)
Quarter: 2011Q2

REPORT INFORMATION
  Report Type: 
  Country: None (occurrence: None)
  Receive Date: 20110520
  Receipt Date: 20110512
  Transmission Date: 20111010
  Serious: Yes (Hospitalization)
  Sender: FDA-Public Use
  Company Number: 2011SP022122

PATIENT
  Age: 89 Year
  Sex: Female

DRUGS (13)
  1. STRESAM [Concomitant]
  2. RABEPRAZOLE SODIUM [Concomitant]
  3. ZOLPIDEM [Concomitant]
  4. PAROXETINE HCL [Concomitant]
  5. MIRTAZAPINE [Suspect]
     Indication: PRODUCT USED FOR UNKNOWN INDICATION
     Dosage: 15 MG; QD; PO
     Route: 048
     Dates: start: 20110318, end: 20110321
  6. MOTILIUM [Concomitant]
  7. TRANSIPEG [Concomitant]
  8. RAMIPRIL [Concomitant]
  9. ARIXTRA [Concomitant]
  10. PREVISCAN [Concomitant]
  11. POTASSIUM CHLORIDE [Concomitant]
  12. CORDARONE [Concomitant]
  13. LEXOMIL [Concomitant]

REACTIONS (4)
  - LUNG DISORDER [None]
  - CONFUSIONAL STATE [None]
  - HALLUCINATION, VISUAL [None]
  - GENERAL PHYSICAL HEALTH DETERIORATION [None]
